FAERS Safety Report 4393213-9 (Version None)
Quarter: 2004Q3

REPORT INFORMATION
  Report Type: 
  Country: None (occurrence: None)
  Receive Date: 20040702
  Receipt Date: 20040622
  Transmission Date: 20050211
  Serious: Yes (Disabling, Other)
  Sender: FDA-Public Use
  Company Number: 2004041993

PATIENT
  Age: 26 Year
  Sex: Female

DRUGS (1)
  1. LITHIUM (LITHIUM) [Suspect]
     Indication: BIPOLAR I DISORDER
     Dosage: 800 MG

REACTIONS (7)
  - ANOREXIA [None]
  - GOITRE [None]
  - HYPERHIDROSIS [None]
  - IODINE UPTAKE DECREASED [None]
  - PALPITATIONS [None]
  - THYROIDITIS [None]
  - TREMOR [None]
